FAERS Safety Report 15456991 (Version 2)
Quarter: 2018Q4

REPORT INFORMATION
  Report Type: Report from Study
  Country: US (occurrence: US)
  Receive Date: 20181002
  Receipt Date: 20181106
  Transmission Date: 20190204
  Serious: Yes (Death, Hospitalization, Other)
  Sender: FDA-Public Use
  Company Number: US-ACTELION-A-US2018-167869

PATIENT
  Age: 69 Year
  Sex: Male

DRUGS (6)
  1. VELETRI [Suspect]
     Active Substance: EPOPROSTENOL
     Indication: PULMONARY ARTERIAL HYPERTENSION
     Dosage: 32 NG/KG, PER MIN
     Route: 042
     Dates: start: 20160906, end: 20180921
  2. WARFARIN [Concomitant]
     Active Substance: WARFARIN
  3. ADCIRCA [Concomitant]
     Active Substance: TADALAFIL
  4. TADALAFIL. [Concomitant]
     Active Substance: TADALAFIL
  5. METOLAZONE. [Concomitant]
     Active Substance: METOLAZONE
  6. TORSEMIDE. [Concomitant]
     Active Substance: TORSEMIDE

REACTIONS (6)
  - Condition aggravated [Fatal]
  - Right ventricular failure [Fatal]
  - Transfusion [Unknown]
  - Haematoma [Recovering/Resolving]
  - Renal failure [Unknown]
  - Respiratory distress [Fatal]
